FAERS Safety Report 8285726-4 (Version None)
Quarter: 2012Q2

REPORT INFORMATION
  Report Type: 
  Country: None (occurrence: None)
  Receive Date: 20120413
  Receipt Date: 20120406
  Transmission Date: 20120825
  Serious: Yes (Death, Hospitalization, Congenital Anomaly)
  Sender: FDA-Public Use
  Company Number: US-GILEAD-2011-0035224

PATIENT
  Sex: Female

DRUGS (1)
  1. EMTRICITABINE AND TENOFOVIR DISOPROXIL FUMARATE [Suspect]
     Indication: PROPHYLAXIS AGAINST HIV INFECTION
     Dates: start: 20090728, end: 20100308

REACTIONS (2)
  - VENTRICULAR SEPTAL DEFECT [None]
  - EXOMPHALOS [None]
